FAERS Safety Report 8756922 (Version 1)
Quarter: 2012Q4

REPORT INFORMATION
  Report Type: 
  Country: IT (occurrence: IT)
  Receive Date: 20120828
  Receipt Date: 20120828
  Transmission Date: 20130627
  Serious: Yes (Hospitalization)
  Sender: FDA-Public Use
  Company Number: IT-PFIZER INC-2012210596

PATIENT
  Age: 61 Year
  Sex: Female

DRUGS (2)
  1. XANAX [Suspect]
     Dosage: 100 ml, single
     Route: 048
     Dates: start: 20120807, end: 20120807
  2. NOVALGINA [Suspect]
     Dosage: 10 ml, single
     Route: 048
     Dates: start: 20120807, end: 20120807

REACTIONS (2)
  - Intentional overdose [Unknown]
  - Toxicity to various agents [Unknown]
